FAERS Safety Report 26154147 (Version 1)
Quarter: 2025Q4

REPORT INFORMATION
  Report Type: Spontaneous
  Country: PR (occurrence: PR)
  Receive Date: 20251215
  Receipt Date: 20251215
  Transmission Date: 20260117
  Serious: Yes (Hospitalization, Other)
  Sender: IPCA
  Company Number: PR-IPCA LABORATORIES LIMITED-IPC-2025-PR-003421

PATIENT

DRUGS (1)
  1. METFORMIN [Suspect]
     Active Substance: METFORMIN HYDROCHLORIDE
     Indication: Type 2 diabetes mellitus
     Dosage: UNK
     Route: 065

REACTIONS (11)
  - Haematemesis [Unknown]
  - Septic shock [Recovered/Resolved]
  - Lactic acidosis [Recovered/Resolved]
  - Pneumonia [Unknown]
  - Acute kidney injury [Recovered/Resolved]
  - Respiratory distress [Unknown]
  - Respiratory failure [Unknown]
  - Mental status changes [Recovered/Resolved]
  - Leukocytosis [Recovered/Resolved]
  - Hypoglycaemia [Unknown]
  - Metabolic acidosis [Unknown]
